FAERS Safety Report 6119783-8 (Version None)
Quarter: 2009Q1

REPORT INFORMATION
  Report Type: 
  Country: None (occurrence: None)
  Receive Date: 20090316
  Receipt Date: 20090304
  Transmission Date: 20090719
  Serious: Yes (Other)
  Sender: FDA-Public Use
  Company Number: US-PFIZER INC-2009179199

PATIENT

DRUGS (1)
  1. LYRICA [Suspect]

REACTIONS (1)
  - MYOCARDIAL INFARCTION [None]
